FAERS Safety Report 7580682-6 (Version None)
Quarter: 2011Q2

REPORT INFORMATION
  Report Type: 
  Country: None (occurrence: None)
  Receive Date: 20110620
  Receipt Date: 20110608
  Transmission Date: 20111010
  Serious: Yes (Other)
  Sender: FDA-Public Use
  Company Number: 2011028856

PATIENT
  Age: 48 Year
  Sex: Male
  Weight: 72.1219 kg

DRUGS (3)
  1. HIZENTRA [Suspect]
     Indication: IMMUNODEFICIENCY COMMON VARIABLE
     Dosage: (5 G 1X/WEEK, INFUSED 25 ML VIA 1-3 SITES OVER 1 HR 42 MINUTES SUBCUTANEOUS), ()
     Route: 058
     Dates: start: 20110301
  2. HIZENTRA [Suspect]
     Indication: IMMUNODEFICIENCY COMMON VARIABLE
     Dosage: (5 G 1X/WEEK, INFUSED 25 ML VIA 1-3 SITES OVER 1 HR 42 MINUTES SUBCUTANEOUS), ()
     Route: 058
     Dates: start: 20110218
  3. HIZENTRA [Suspect]

REACTIONS (3)
  - PRODUCTIVE COUGH [None]
  - RESPIRATORY TRACT INFECTION [None]
  - FATIGUE [None]
